FAERS Safety Report 7064424-9 (Version None)
Quarter: 2010Q4

REPORT INFORMATION
  Report Type: 
  Country: None (occurrence: None)
  Receive Date: 20101027
  Receipt Date: 20101014
  Transmission Date: 20110411
  Serious: Yes (Other)
  Sender: FDA-Public Use
  Company Number: PHHY2010BR22120

PATIENT
  Age: 60 Year
  Sex: Female

DRUGS (1)
  1. TEGRETOL-XR [Suspect]
     Dosage: 200 MG
     Route: 048

REACTIONS (2)
  - CONVULSION [None]
  - FEELING ABNORMAL [None]
